FAERS Safety Report 15714111 (Version 2)
Quarter: 2018Q4

REPORT INFORMATION
  Report Type: Spontaneous
  Country: ZA (occurrence: ZA)
  Receive Date: 20181212
  Receipt Date: 20181218
  Transmission Date: 20190205
  Serious: Yes (Hospitalization)
  Sender: FDA-Public Use
  Company Number: ZA-NOVOPROD-636238

PATIENT
  Age: 57 Year
  Sex: Female

DRUGS (9)
  1. COVERAM [Concomitant]
     Active Substance: AMLODIPINE\PERINDOPRIL
     Dosage: 10/10MG
  2. INEGY [Concomitant]
     Active Substance: EZETIMIBE\SIMVASTATIN
     Dosage: 10/20 MG
  3. ECOTRIN [Concomitant]
     Active Substance: ASPIRIN
     Dosage: 81 MG
  4. JANUVIA [Concomitant]
     Active Substance: SITAGLIPTIN PHOSPHATE
     Dosage: 50 MG
  5. DIAGLUCIDE [Concomitant]
     Active Substance: GLICLAZIDE
     Dosage: 60MG
  6. VAGIFEM [Suspect]
     Active Substance: ESTRADIOL
     Indication: HORMONE REPLACEMENT THERAPY
     Dosage: 10 ?G, BIW(1 TABLET TWICE WEEKLY.)
     Route: 067
     Dates: start: 201809
  7. VESICARE [Concomitant]
     Active Substance: SOLIFENACIN SUCCINATE
     Dosage: 10MG
  8. GLUCOPHAGE XR [Concomitant]
     Active Substance: METFORMIN HYDROCHLORIDE
     Dosage: 1000 MG
  9. EXSIRA [Concomitant]
     Active Substance: DESVENLAFAXINE SUCCINATE
     Dosage: 100MG

REACTIONS (2)
  - Procedural pain [Recovering/Resolving]
  - Intervertebral disc protrusion [Recovering/Resolving]
